FAERS Safety Report 24330347 (Version 1)
Quarter: 2024Q3

REPORT INFORMATION
  Report Type: Report from Study
  Country: ZA (occurrence: ZA)
  Receive Date: 20240918
  Receipt Date: 20240918
  Transmission Date: 20241016
  Serious: Yes (Hospitalization, Disabling)
  Sender: ABBVIE
  Company Number: ZA-ABBOTT-2024A-1387211

PATIENT
  Age: 85 Year
  Sex: Female

DRUGS (31)
  1. CREON [Suspect]
     Active Substance: PANCRELIPASE AMYLASE\PANCRELIPASE LIPASE\PANCRELIPASE PROTEASE
     Indication: Pancreatic failure
     Dosage: 300 MG TWO CAPSULES TWICE A DAY,?25000
     Route: 048
  2. BETAHISTINE HYDROCHLORIDE [Concomitant]
     Active Substance: BETAHISTINE HYDROCHLORIDE
     Indication: Vertigo
     Dosage: 24 MG ONE TABLET DAILY
     Route: 048
  3. Sinucon [Concomitant]
     Indication: Product used for unknown indication
     Dosage: 1-2 TABLET(S) THREE TIMES A DAY
     Route: 048
  4. MOXIFLOXACIN [Concomitant]
     Active Substance: MOXIFLOXACIN
     Indication: Product used for unknown indication
     Dosage: 400 MG ONE TABLET DAILY
     Route: 048
  5. METFORMIN HYDROCHLORIDE [Concomitant]
     Active Substance: METFORMIN HYDROCHLORIDE
     Indication: Diabetes mellitus
     Dosage: 1000 MG ONE TABLET DAILY
     Route: 048
  6. LEVALBUTEROL HYDROCHLORIDE [Concomitant]
     Active Substance: LEVALBUTEROL HYDROCHLORIDE
     Indication: Asthma
     Dosage: ONE TWICE A DAY
     Route: 055
  7. TELMISARTAN [Concomitant]
     Active Substance: TELMISARTAN
     Indication: Hypertension
     Dosage: 40 MG ONE TABLET DAILY
     Route: 048
  8. RELIEF-COFF [Concomitant]
     Indication: Product used for unknown indication
     Dosage: TWO MEDICINE MEASURES THREE TIMES A DAY
     Route: 048
  9. METHYLPREDNISOLONE ACEPONATE [Concomitant]
     Active Substance: METHYLPREDNISOLONE ACEPONATE
     Indication: Product used for unknown indication
     Dosage: 1 MG APPLY TWICE A DAY
     Route: 061
  10. MIRABEGRON [Concomitant]
     Active Substance: MIRABEGRON
     Indication: Bladder disorder
     Dosage: 50 MG ONE TABLET DAILY
     Route: 048
  11. FOLIC ACID [Concomitant]
     Active Substance: FOLIC ACID
     Indication: Coronary artery disease
     Dosage: 5 MG ONE TABLET DAILY
     Route: 048
  12. PENTASA [Concomitant]
     Active Substance: MESALAMINE
     Indication: Colitis ulcerative
     Dosage: 500 MG ONE TABLET DAILY
     Route: 048
  13. Expigen [Concomitant]
     Indication: Product used for unknown indication
     Dosage: TWO MEDICINE MEASURES THREE TIMES A DAY
     Route: 048
  14. Allecet [Concomitant]
     Indication: Hypersensitivity
     Dosage: 10 MG TAKE ONE TABLET DAILY
     Route: 048
  15. Segavin [Concomitant]
     Indication: Blood disorder prophylaxis
     Dosage: 5 MG ONE AND A HALF TABLETS AT NIGHT
     Route: 048
  16. RIVAROXABAN [Concomitant]
     Active Substance: RIVAROXABAN
     Indication: Blood disorder prophylaxis
     Dosage: 20 MG ONE TABLET DAILY
     Route: 048
  17. BUDESONIDE [Concomitant]
     Active Substance: BUDESONIDE
     Indication: Rhinitis allergic
     Dosage: 0.5 MG ONE TWICE A DAY
     Route: 055
  18. ILEVRO [Concomitant]
     Active Substance: NEPAFENAC
     Indication: Product used for unknown indication
     Dosage: 3 MG ONE DROP AT NIGHT FOR BOTH EYES FOR ONE MONTH ONLY
  19. GLUCOPHAGE XR [Concomitant]
     Active Substance: METFORMIN HYDROCHLORIDE
     Indication: Diabetes mellitus
     Dosage: 1000 MG ONE TABLET DAILY
     Route: 048
  20. OCUVITE COMPLETE [Concomitant]
     Indication: Product used for unknown indication
     Dosage: ONE CAPSULE DAILY
     Route: 048
  21. ETORICOXIB [Concomitant]
     Active Substance: ETORICOXIB
     Indication: Pain
     Dosage: 90 MG ONE TABLET DAILY
     Route: 048
  22. AMITRIPTYLINE HYDROCHLORIDE [Concomitant]
     Active Substance: AMITRIPTYLINE HYDROCHLORIDE
     Indication: Depression
     Dosage: 25 MG ONE TABLET AT NIGHT
     Route: 048
  23. SOTALOL [Concomitant]
     Active Substance: SOTALOL\SOTALOL HYDROCHLORIDE
     Indication: Hypertension
     Dosage: 80 MG HALF A TABLET TWICE A DAY
     Route: 048
  24. Stilpane [Concomitant]
     Indication: Pain
     Dosage: TWO TABLETS DAILY
     Route: 048
  25. ESOMEPRAZOLE [Concomitant]
     Active Substance: ESOMEPRAZOLE
     Indication: Gastrooesophageal reflux disease
     Dosage: 20 MG ONE TABLET IN THE MORNING
     Route: 048
  26. CEFPODOXIME PROXETIL [Concomitant]
     Active Substance: CEFPODOXIME PROXETIL
     Indication: Product used for unknown indication
     Dosage: 200 MG ONE TABLET IN THE MORNING AND EVENING
     Route: 048
  27. OTRIVIN PLUS [Concomitant]
     Indication: Hypersensitivity
     Dosage: TWO SPRAYS THREE TIMES A DAY
     Route: 045
  28. LEVOTHYROXINE [Concomitant]
     Active Substance: LEVOTHYROXINE\LEVOTHYROXINE SODIUM
     Indication: Hypothyroidism
     Dosage: 100 MCG ONE TABLET IN THE MORNING
     Route: 048
  29. ZOLPIDEM TARTRATE [Concomitant]
     Active Substance: ZOLPIDEM TARTRATE
     Indication: Insomnia
     Dosage: 10 MG TAKE ONE TABLET AT NIGH
     Route: 048
  30. ETORICOXIB [Concomitant]
     Active Substance: ETORICOXIB
     Indication: Pain
     Dosage: 90 MG TAKE ONE TABLET DAILY
     Route: 048
  31. ACETYLCYSTEINE [Concomitant]
     Active Substance: ACETYLCYSTEINE
     Indication: Product used for unknown indication
     Dosage: 600 MG ONE DISSOLVED IN WATER DAILY
     Route: 048

REACTIONS (2)
  - Blindness [Unknown]
  - Illness [Unknown]
